FAERS Safety Report 14850194 (Version 2)
Quarter: 2018Q2

REPORT INFORMATION
  Report Type: Spontaneous
  Country: AR (occurrence: AR)
  Receive Date: 20180505
  Receipt Date: 20180530
  Transmission Date: 20180711
  Serious: Yes (Other)
  Sender: FDA-Public Use
  Company Number: AR-ROCHE-2098882

PATIENT
  Age: 80 Year
  Sex: Male

DRUGS (2)
  1. LUCENTIS [Suspect]
     Active Substance: RANIBIZUMAB
     Route: 050
  2. LUCENTIS [Suspect]
     Active Substance: RANIBIZUMAB
     Indication: EXUDATIVE RETINOPATHY
     Route: 050

REACTIONS (18)
  - Endophthalmitis [Recovering/Resolving]
  - Macular oedema [Unknown]
  - Fibrin abnormal [Unknown]
  - Vitreous haze [Unknown]
  - Eye haemorrhage [Unknown]
  - Retinal haemorrhage [Unknown]
  - Detachment of macular retinal pigment epithelium [Unknown]
  - Retinal neovascularisation [Unknown]
  - Retinal ischaemia [Unknown]
  - Blindness [Unknown]
  - Eye pain [Unknown]
  - Vision blurred [Unknown]
  - Hypopyon [Recovered/Resolved]
  - Ischaemia [Unknown]
  - Splinter haemorrhages [Unknown]
  - Eyelash thickening [Unknown]
  - Conjunctival ulcer [Unknown]
  - Hyphaema [Unknown]

NARRATIVE: CASE EVENT DATE: 20171130
